FAERS Safety Report 14970946 (Version 1)
Quarter: 2018Q2

REPORT INFORMATION
  Report Type: Spontaneous
  Country: CN (occurrence: CN)
  Receive Date: 20180604
  Receipt Date: 20180604
  Transmission Date: 20180711
  Serious: Yes (Other)
  Sender: FDA-Public Use
  Company Number: CN-JNJFOC-20180537673

PATIENT
  Sex: Female

DRUGS (1)
  1. RISPERDAL [Suspect]
     Active Substance: RISPERIDONE
     Indication: SCHIZOPHRENIA
     Dosage: 2-5 MG
     Route: 065

REACTIONS (6)
  - Body mass index increased [Unknown]
  - Blood insulin decreased [Unknown]
  - Exposure during pregnancy [Unknown]
  - Abortion [Unknown]
  - Premature labour [Unknown]
  - Blood triglycerides increased [Unknown]
